FAERS Safety Report 8583813 (Version 3)
Quarter: 2015Q1

REPORT INFORMATION
  Report Type: Spontaneous
  Country: US (occurrence: US)
  Receive Date: 20120529
  Receipt Date: 20150310
  Transmission Date: 20150721
  Serious: Yes (Other)
  Sender: FDA-Public Use
  Company Number: US-ROCHE-GNE249112

PATIENT
  Age: 79 Year
  Sex: Female

DRUGS (8)
  1. LUCENTIS [Suspect]
     Active Substance: RANIBIZUMAB
     Indication: OPTIC NEUROPATHY
     Dosage: OD (RIGHT EYE)
     Route: 050
     Dates: start: 20120321
  2. SYNTHROID [Concomitant]
     Active Substance: LEVOTHYROXINE SODIUM
     Indication: HYPOTHYROIDISM
     Route: 048
  3. LUCENTIS [Suspect]
     Active Substance: RANIBIZUMAB
     Indication: AGE-RELATED MACULAR DEGENERATION
     Dosage: UNK, 1 MONTH, STARTED ABOUT 9 YEARS AGO TO RIGHT EYE
     Route: 050
     Dates: start: 20060826
  4. LIPITOR [Concomitant]
     Active Substance: ATORVASTATIN CALCIUM
     Indication: BLOOD CHOLESTEROL INCREASED
     Route: 048
  5. LUCENTIS [Suspect]
     Active Substance: RANIBIZUMAB
     Indication: MACULAR DEGENERATION
     Dosage: OS
     Route: 050
     Dates: start: 20120208
  6. CRESTOR [Concomitant]
     Active Substance: ROSUVASTATIN CALCIUM
     Indication: BLOOD CHOLESTEROL INCREASED
     Route: 048
  7. VYTORIN [Concomitant]
     Active Substance: EZETIMIBE\SIMVASTATIN
     Indication: PRODUCT USED FOR UNKNOWN INDICATION
  8. LUCENTIS [Suspect]
     Active Substance: RANIBIZUMAB
     Indication: EYE HAEMORRHAGE
     Dosage: OD (RIGHT EYE)
     Route: 050
     Dates: start: 20111214

REACTIONS (9)
  - Macular degeneration [Unknown]
  - Drug ineffective [Unknown]
  - Retinal haemorrhage [Not Recovered/Not Resolved]
  - Eye disorder [Not Recovered/Not Resolved]
  - Pain [Unknown]
  - Hearing impaired [Not Recovered/Not Resolved]
  - Eye pain [Unknown]
  - Cerebrovascular accident [Unknown]
  - Eye swelling [Unknown]

NARRATIVE: CASE EVENT DATE: 20071003
